FAERS Safety Report 21264460 (Version 1)
Quarter: 2022Q3

REPORT INFORMATION
  Report Type: Spontaneous
  Country: US (occurrence: None)
  Receive Date: 20220826
  Receipt Date: 20220826
  Transmission Date: 20221026
  Serious: No
  Sender: FDA-Public Use
  Company Number: None

PATIENT
  Age: 67 Year
  Sex: Male
  Weight: 102.06 kg

DRUGS (14)
  1. GLEOSTINE [Suspect]
     Active Substance: LOMUSTINE
     Indication: Brain neoplasm malignant
     Dosage: OTHER FREQUENCY : DAY 1;?
     Route: 048
     Dates: start: 202207
  2. ACETAMINOPHEN [Concomitant]
     Active Substance: ACETAMINOPHEN
  3. ATIVAN [Concomitant]
     Active Substance: LORAZEPAM
  4. AVASTIN [Concomitant]
     Active Substance: BEVACIZUMAB
  5. DOXYCYCLINE [Concomitant]
     Active Substance: DOXYCYCLINE
  6. DULOXETINE [Concomitant]
     Active Substance: DULOXETINE
  7. HUMALOG [Concomitant]
     Active Substance: INSULIN LISPRO
  8. KEPPRA [Concomitant]
     Active Substance: LEVETIRACETAM
  9. LIPITOR [Concomitant]
     Active Substance: ATORVASTATIN CALCIUM
  10. VITAMINS [Concomitant]
     Active Substance: VITAMINS
  11. OXYBUTYNIN [Concomitant]
     Active Substance: OXYBUTYNIN
  12. TEMOZOLOMIDE [Concomitant]
     Active Substance: TEMOZOLOMIDE
  13. XARELTO [Concomitant]
     Active Substance: RIVAROXABAN
  14. ZOFRAN [Concomitant]
     Active Substance: ONDANSETRON HYDROCHLORIDE

REACTIONS (1)
  - Disease progression [None]
